FAERS Safety Report 8173913-5 (Version None)
Quarter: 2012Q1

REPORT INFORMATION
  Report Type: 
  Country: None (occurrence: None)
  Receive Date: 20120229
  Receipt Date: 20120216
  Transmission Date: 20120608
  Serious: Yes (Hospitalization)
  Sender: FDA-Public Use
  Company Number: US-ELI_LILLY_AND_COMPANY-US201202005497

PATIENT
  Sex: Female

DRUGS (15)
  1. ASPIRIN [Concomitant]
     Dosage: 81 MG, UNK
  2. CITRACAL + D [Concomitant]
  3. INSULIN [Concomitant]
     Indication: DIABETES MELLITUS
  4. LASIX [Concomitant]
  5. CARAFATE [Concomitant]
  6. LANTUS [Concomitant]
     Indication: DIABETES MELLITUS
  7. DIOVAN [Concomitant]
  8. FORTEO [Suspect]
     Indication: OSTEOPOROSIS
     Dosage: 20 UG, QD
     Dates: start: 20080101
  9. CLONIDINE [Concomitant]
  10. CRANBERRY [Concomitant]
  11. NITROGLYCERIN [Concomitant]
     Dosage: UNK UNK, OTHER
  12. FORTEO [Suspect]
     Dosage: 20 UG, QD
     Dates: start: 20110601
  13. NIFEDIPINE [Concomitant]
  14. MICRO-K [Concomitant]
  15. MULTI-VITAMIN [Concomitant]

REACTIONS (3)
  - UPPER LIMB FRACTURE [None]
  - PATELLA FRACTURE [None]
  - FALL [None]
